FAERS Safety Report 5857832-2 (Version None)
Quarter: 2008Q3

REPORT INFORMATION
  Report Type: 
  Country: None (occurrence: None)
  Receive Date: 20080822
  Receipt Date: 20080813
  Transmission Date: 20090109
  Serious: Yes (Hospitalization, Other)
  Sender: FDA-Public Use
  Company Number: 2008BI020907

PATIENT
  Age: 44 Year
  Sex: Male
  Weight: 80 kg

DRUGS (1)
  1. TYSABRI [Suspect]
     Indication: RELAPSING-REMITTING MULTIPLE SCLEROSIS
     Dosage: 300 MG; QM; IV
     Route: 042
     Dates: start: 20080101, end: 20080601

REACTIONS (6)
  - CENTRAL NERVOUS SYSTEM LESION [None]
  - CONVULSION [None]
  - MUSCLE SPASTICITY [None]
  - NUCLEAR MAGNETIC RESONANCE IMAGING BRAIN ABNORMAL [None]
  - STAPHYLOCOCCAL INFECTION [None]
  - THERAPEUTIC PRODUCT CONTAMINATION [None]
